FAERS Safety Report 4892681-3 (Version None)
Quarter: 2006Q1

REPORT INFORMATION
  Report Type: 
  Country: None (occurrence: None)
  Receive Date: 20060125
  Receipt Date: 20060125
  Transmission Date: 20060701
  Serious: Yes (Life-Threatening)
  Sender: FDA-Public Use
  Company Number: None

PATIENT
  Age: 23 Year
  Sex: Female
  Weight: 63 kg

DRUGS (13)
  1. ETANERCEPT [Suspect]
     Indication: IDIOPATHIC PNEUMONIA SYNDROME
     Dosage: 25 MG SQ X 2 DOSES
     Route: 058
     Dates: start: 20051022, end: 20051025
  2. HEPARIN [Concomitant]
  3. NYSTATIN [Concomitant]
  4. LEVOTHYROXINE SODIUM [Concomitant]
  5. FILGRASTIM [Concomitant]
  6. LEVOFLOXACIN [Concomitant]
  7. ONDANSETRON [Concomitant]
  8. LEUCOVORIN CALCIUM [Concomitant]
  9. METHYLPREDNISOLONE [Concomitant]
  10. VORICONAZOLE [Concomitant]
  11. UNASYN [Concomitant]
  12. ACETAMINOPHEN [Concomitant]
  13. POTASSIUM CHLORIDE [Concomitant]

REACTIONS (5)
  - CARDIOGENIC SHOCK [None]
  - EJECTION FRACTION DECREASED [None]
  - MULTI-ORGAN FAILURE [None]
  - RESTRICTIVE CARDIOMYOPATHY [None]
  - SEPSIS SYNDROME [None]
